FAERS Safety Report 8036043-9 (Version None)
Quarter: 2012Q1

REPORT INFORMATION
  Report Type: 
  Country: None (occurrence: None)
  Receive Date: 20120111
  Receipt Date: 20111229
  Transmission Date: 20120608
  Serious: Yes (Other)
  Sender: FDA-Public Use
  Company Number: US-ARROW GEN-2011-23271

PATIENT
  Age: 54 Year
  Sex: Female

DRUGS (5)
  1. HYDROCHLOROTHIAZIDE [Suspect]
     Indication: PRODUCT USED FOR UNKNOWN INDICATION
  2. ALENDRONATE SODIUM [Suspect]
     Indication: BONE DISORDER
     Dosage: UNK
  3. MOMETASONE FUROATE [Suspect]
     Indication: PRODUCT USED FOR UNKNOWN INDICATION
  4. CHEWABLE ANTACID EXTRA STRENGTH ASSORTED BERRIES [Suspect]
     Indication: BONE DISORDER
  5. AOV VITAMIN D3 [Suspect]
     Indication: BONE DISORDER

REACTIONS (1)
  - FEMUR FRACTURE [None]
